FAERS Safety Report 17219203 (Version 1)
Quarter: 2019Q4

REPORT INFORMATION
  Report Type: Spontaneous
  Country: US (occurrence: US)
  Receive Date: 20191231
  Receipt Date: 20191231
  Transmission Date: 20200122
  Serious: Yes (Hospitalization)
  Sender: FDA-Public Use
  Company Number: US-SLATE RUN PHARMACEUTICALS-SLTR-AE-19-127

PATIENT
  Age: 5 Year
  Sex: Male

DRUGS (2)
  1. VANCOMYCIN HCL FOR INJECTION USP [Suspect]
     Active Substance: VANCOMYCIN HYDROCHLORIDE
     Indication: STAPHYLOCOCCAL INFECTION
  2. METRONIDAZOLE. [Concomitant]
     Active Substance: METRONIDAZOLE
     Route: 048

REACTIONS (2)
  - Septic shock [Recovered/Resolved]
  - Metabolic acidosis [Recovered/Resolved]
